FAERS Safety Report 7376196-9 (Version None)
Quarter: 2011Q1

REPORT INFORMATION
  Report Type: 
  Country: None (occurrence: None)
  Receive Date: 20110325
  Receipt Date: 20110322
  Transmission Date: 20110831
  Serious: No
  Sender: FDA-Public Use
  Company Number: US-TEVA-272911USA

PATIENT
  Sex: Female

DRUGS (2)
  1. PLAN B ONE-STEP [Suspect]
     Indication: POST COITAL CONTRACEPTION
     Route: 048
     Dates: start: 20110321, end: 20110321
  2. LOESTRIN 1.5/30 [Suspect]
     Indication: CONTRACEPTION
     Route: 048

REACTIONS (2)
  - PELVIC PAIN [None]
  - MENSTRUATION IRREGULAR [None]
